FAERS Safety Report 8429877-X (Version None)
Quarter: 2012Q2

REPORT INFORMATION
  Report Type: 
  Country: None (occurrence: None)
  Receive Date: 20120523
  Receipt Date: 20120516
  Transmission Date: 20120825
  Serious: Yes (Other)
  Sender: FDA-Public Use
  Company Number: 2012032338

PATIENT
  Age: 56 Year
  Sex: Female
  Weight: 62.5964 kg

DRUGS (19)
  1. CYMBALTA [Concomitant]
  2. METHYLPHENIDATE HCL [Concomitant]
  3. LISINOPRIL [Concomitant]
  4. LIDOCAINE/PRILOCAINE (EMLA) [Concomitant]
  5. HIZENTRA [Suspect]
  6. NASONEX [Concomitant]
  7. OMEPRAZOLE [Concomitant]
  8. CALCIUM CARBONATE [Concomitant]
  9. TRAZODONE HCL [Concomitant]
  10. PREDNISONE TAB [Concomitant]
  11. MORPHINE SULFATE IR (MORPHINE SULFATE) [Concomitant]
  12. LEVOTHROID [Concomitant]
  13. DULERA (MOMETASONE FUROATE) [Concomitant]
  14. PROAIR HFA (SALBUTAMOL SULFATE) [Concomitant]
  15. SINGULAIR [Concomitant]
  16. VITAMIN E [Concomitant]
  17. HIZENTRA [Suspect]
     Dosage: (SUBCUTANEOUS), 6 G 1X/WEEK, (30 ML) 2-3 SITES OVER 1-2 HOURS SUBCUTANEOUS), (SUBCUTANEOUS)
     Route: 058
     Dates: start: 20120511
  18. HIZENTRA [Suspect]
     Dosage: (SUBCUTANEOUS), 6 G 1X/WEEK, (30 ML) 2-3 SITES OVER 1-2 HOURS SUBCUTANEOUS), (SUBCUTANEOUS)
     Route: 058
     Dates: start: 20110305
  19. MULTIVITAMIN (DAILY MULTIVITAMIN) [Concomitant]

REACTIONS (3)
  - HEADACHE [None]
  - INFUSION SITE SWELLING [None]
  - RESPIRATORY TRACT INFECTION [None]
